FAERS Safety Report 4914624-6 (Version None)
Quarter: 2006Q1

REPORT INFORMATION
  Report Type: 
  Country: None (occurrence: None)
  Receive Date: 20060216
  Receipt Date: 20051114
  Transmission Date: 20060701
  Serious: Yes (Hospitalization, Disabling)
  Sender: FDA-Public Use
  Company Number: US-MERCK-0511USA02677

PATIENT
  Age: 43 Year
  Sex: Female
  Weight: 82 kg

DRUGS (1)
  1. VIOXX [Suspect]
     Indication: SPONDYLITIS
     Route: 048
     Dates: start: 20040112, end: 20040101

REACTIONS (4)
  - ANXIETY [None]
  - CARDIAC FAILURE CONGESTIVE [None]
  - MEMORY IMPAIRMENT [None]
  - MOOD SWINGS [None]
